FAERS Safety Report 8852024 (Version 1)
Quarter: 2012Q4

REPORT INFORMATION
  Report Type: 
  Country: US (occurrence: US)
  Receive Date: 20121022
  Receipt Date: 20121022
  Transmission Date: 20130627
  Serious: Yes (Other)
  Sender: FDA-Public Use
  Company Number: US-ASTELLAS-2012US004809

PATIENT
  Sex: Female

DRUGS (5)
  1. VESICARE [Suspect]
     Indication: NOCTURIA
     Dosage: 10 mg, UID/QD
     Route: 048
     Dates: start: 2007
  2. VESICARE [Suspect]
     Indication: POLLAKIURIA
  3. VESICARE [Suspect]
     Indication: CYSTITIS NONINFECTIVE
  4. VESICARE [Suspect]
     Indication: URETHRAL STENOSIS
  5. MACRODANTIN [Concomitant]
     Indication: PRODUCT USED FOR UNKNOWN INDICATION
     Dosage: 100 mg, 3 months
     Route: 065

REACTIONS (4)
  - Off label use [Unknown]
  - Drug ineffective [Unknown]
  - Bladder outlet obstruction [Unknown]
  - Urinary tract infection [Unknown]
